FAERS Safety Report 6527824-9 (Version None)
Quarter: 2009Q4

REPORT INFORMATION
  Report Type: 
  Country: None (occurrence: None)
  Receive Date: 20091231
  Receipt Date: 20091114
  Transmission Date: 20100525
  Serious: Yes (Other)
  Sender: FDA-Public Use
  Company Number: 002463

PATIENT
  Sex: Male

DRUGS (1)
  1. VIMPAT [Suspect]

REACTIONS (2)
  - CARDIAC DISORDER [None]
  - MALAISE [None]
